FAERS Safety Report 4447002-7 (Version None)
Quarter: 2004Q3

REPORT INFORMATION
  Report Type: 
  Country: None (occurrence: None)
  Receive Date: 20040812
  Receipt Date: 20040715
  Transmission Date: 20050211
  Serious: No
  Sender: FDA-Public Use
  Company Number: USA040362979

PATIENT
  Age: 45 Year
  Sex: Male

DRUGS (7)
  1. CIALIS [Suspect]
     Dosage: 20 MG
  2. HUMALOG [Suspect]
     Indication: DIABETES MELLITUS
  3. GLUCOPHAGE [Concomitant]
  4. ACCUPRIL [Concomitant]
  5. GREEN TEA [Concomitant]
  6. LANTUS [Concomitant]
  7. ZOCOR [Concomitant]

REACTIONS (2)
  - BLOOD GLUCOSE DECREASED [None]
  - GINGIVAL BLEEDING [None]
